FAERS Safety Report 6555441-3 (Version None)
Quarter: 2010Q1

REPORT INFORMATION
  Report Type: 
  Country: None (occurrence: None)
  Receive Date: 20100128
  Receipt Date: 20091122
  Transmission Date: 20100710
  Serious: No
  Sender: FDA-Public Use
  Company Number: A0832317A

PATIENT
  Sex: Female

DRUGS (1)
  1. WELLBUTRIN [Suspect]
     Route: 065

REACTIONS (1)
  - CONDITION AGGRAVATED [None]
